FAERS Safety Report 11237820 (Version 12)
Quarter: 2017Q1

REPORT INFORMATION
  Report Type: Report from Study
  Country: US (occurrence: US)
  Receive Date: 20150703
  Receipt Date: 20170223
  Transmission Date: 20170428
  Serious: No
  Sender: FDA-Public Use
  Company Number: PHEH2015US008810

PATIENT
  Age: 49 Year
  Sex: Male

DRUGS (10)
  1. MYSOLINE [Concomitant]
     Active Substance: PRIMIDONE
     Indication: PRODUCT USED FOR UNKNOWN INDICATION
     Route: 048
  2. AFINITOR [Suspect]
     Active Substance: EVEROLIMUS
     Dosage: 10 MG, QD
     Route: 065
     Dates: start: 20161212
  3. DILANTIN [Concomitant]
     Active Substance: PHENYTOIN
     Indication: PRODUCT USED FOR UNKNOWN INDICATION
     Route: 065
  4. MULTIVIT//VITAMINS NOS [Concomitant]
     Active Substance: VITAMINS
     Indication: PRODUCT USED FOR UNKNOWN INDICATION
     Route: 065
  5. PHENYTOIN. [Concomitant]
     Active Substance: PHENYTOIN
     Indication: SEIZURE
     Dosage: UNK, QID
     Route: 048
  6. AFINITOR [Suspect]
     Active Substance: EVEROLIMUS
     Indication: ANGIOMYOLIPOMA
     Dosage: 20 MG, QD
     Route: 048
     Dates: start: 20131209, end: 201406
  7. AFINITOR [Suspect]
     Active Substance: EVEROLIMUS
     Dosage: 10 MG, QD
     Route: 048
     Dates: start: 20160511
  8. AFINITOR [Suspect]
     Active Substance: EVEROLIMUS
     Dosage: 15 MG, QD
     Route: 048
     Dates: start: 20150508
  9. AFINITOR [Suspect]
     Active Substance: EVEROLIMUS
     Dosage: 5 MG, QD
     Route: 048
     Dates: start: 20150511
  10. AFINITOR [Suspect]
     Active Substance: EVEROLIMUS
     Dosage: 15 MG, QD
     Route: 065
     Dates: start: 20160815

REACTIONS (8)
  - Peripheral swelling [Recovering/Resolving]
  - Oedema peripheral [Recovering/Resolving]
  - Stomatitis [Recovering/Resolving]
  - Protein urine present [Unknown]
  - Stomatitis [Recovered/Resolved]
  - Blood alkaline phosphatase increased [Unknown]
  - Mouth ulceration [Unknown]
  - Drug level decreased [Unknown]

NARRATIVE: CASE EVENT DATE: 201406
